FAERS Safety Report 7152510-4 (Version None)
Quarter: 2010Q4

REPORT INFORMATION
  Report Type: 
  Country: None (occurrence: None)
  Receive Date: 20101213
  Receipt Date: 20101207
  Transmission Date: 20110411
  Serious: No
  Sender: FDA-Public Use
  Company Number: US-PFIZER INC-2010166754

PATIENT
  Sex: Female
  Weight: 93 kg

DRUGS (4)
  1. PRISTIQ [Suspect]
     Indication: DEPRESSION
     Dosage: 50 MG, 1X/DAY
     Route: 048
     Dates: start: 20101202
  2. LOPRESSOR [Concomitant]
     Indication: HYPERTENSION
     Dosage: UNK
  3. PROZAC [Concomitant]
     Dosage: UNK
  4. CLARITIN [Concomitant]
     Dosage: UNK

REACTIONS (1)
  - MEDICATION RESIDUE [None]
